FAERS Safety Report 6437033-X (Version None)
Quarter: 2009Q4

REPORT INFORMATION
  Report Type: 
  Country: None (occurrence: None)
  Receive Date: 20091112
  Receipt Date: 20091103
  Transmission Date: 20100525
  Serious: Yes (Life-Threatening, Hospitalization)
  Sender: FDA-Public Use
  Company Number: US-JNJFOC-20091101522

PATIENT
  Age: 17 Year
  Sex: Male

DRUGS (5)
  1. HALOPERIDOL [Suspect]
     Indication: AGITATION
     Dosage: AS NEEDED.
     Route: 065
  2. HALOPERIDOL [Suspect]
     Route: 030
  3. LORAZEPAM [Suspect]
     Indication: AGITATION
     Route: 065
  4. IMIPRAMINE [Suspect]
     Indication: DRUG USE FOR UNKNOWN INDICATION
     Route: 065
  5. PERPHENAZINE [Suspect]
     Indication: DRUG USE FOR UNKNOWN INDICATION
     Route: 065

REACTIONS (5)
  - AGITATION [None]
  - ELECTROENCEPHALOGRAM ABNORMAL [None]
  - FALL [None]
  - NEUROLEPTIC MALIGNANT SYNDROME [None]
  - UNRESPONSIVE TO STIMULI [None]
